FAERS Safety Report 8336020-4 (Version None)
Quarter: 2012Q2

REPORT INFORMATION
  Report Type: 
  Country: None (occurrence: None)
  Receive Date: 20120501
  Receipt Date: 20120501
  Transmission Date: 20120825
  Serious: No
  Sender: FDA-Public Use
  Company Number: None

PATIENT
  Sex: Female

DRUGS (1)
  1. ENBREL [Suspect]
     Indication: ANKYLOSING SPONDYLITIS
     Dosage: 25MG SQ WEEKLY
     Route: 058
     Dates: start: 20111001, end: 20120201

REACTIONS (2)
  - PRURITUS GENERALISED [None]
  - MEMORY IMPAIRMENT [None]
